FAERS Safety Report 6965013-4 (Version None)
Quarter: 2010Q3

REPORT INFORMATION
  Report Type: 
  Country: None (occurrence: None)
  Receive Date: 20100903
  Receipt Date: 20100826
  Transmission Date: 20110219
  Serious: Yes (Hospitalization)
  Sender: FDA-Public Use
  Company Number: CA-JNJFOC-20100602868

PATIENT
  Sex: Male
  Weight: 107 kg

DRUGS (4)
  1. REMICADE [Suspect]
     Indication: RHEUMATOID ARTHRITIS
     Dosage: 18TH INFUSION
     Route: 042
  2. REMICADE [Suspect]
     Route: 042
  3. REMICADE [Suspect]
     Dosage: 17 INFUSIONS ON UNSPECIFIED DATES
     Route: 042
  4. METHOTREXATE [Concomitant]
     Route: 058

REACTIONS (2)
  - ROTATOR CUFF REPAIR [None]
  - SHOULDER OPERATION [None]
